FAERS Safety Report 5835163-4 (Version None)
Quarter: 2008Q3

REPORT INFORMATION
  Report Type: 
  Country: None (occurrence: None)
  Receive Date: 20080804
  Receipt Date: 20080723
  Transmission Date: 20090109
  Serious: Yes (Hospitalization, Other)
  Sender: FDA-Public Use
  Company Number: 028-21880-08071393

PATIENT
  Age: 72 Year
  Sex: Female

DRUGS (4)
  1. REVLIMID [Suspect]
     Indication: MYELODYSPLASTIC SYNDROME
     Dosage: 5 MG, HS, ORAL; 5 MG, BID, ORAL
     Route: 048
     Dates: start: 20071201, end: 20080301
  2. REVLIMID [Suspect]
     Indication: MYELODYSPLASTIC SYNDROME
     Dosage: 5 MG, HS, ORAL; 5 MG, BID, ORAL
     Route: 048
     Dates: start: 20080101
  3. SYNTHROID [Concomitant]
  4. EXJADE [Concomitant]

REACTIONS (9)
  - BALANCE DISORDER [None]
  - BLINDNESS [None]
  - DIARRHOEA [None]
  - DIZZINESS [None]
  - EYE HAEMORRHAGE [None]
  - FALL [None]
  - SOMNOLENCE [None]
  - THYROID DISORDER [None]
  - WRIST FRACTURE [None]
